FAERS Safety Report 12781664 (Version 1)
Quarter: 2016Q3

REPORT INFORMATION
  Report Type: Report from Study
  Country: DE (occurrence: DE)
  Receive Date: 20160926
  Receipt Date: 20160926
  Transmission Date: 20161109
  Serious: Yes (Hospitalization)
  Sender: FDA-Public Use
  Company Number: US-ASTRAZENECA-2016SF02114

PATIENT
  Age: 7 Month
  Sex: Male

DRUGS (6)
  1. SYNAGIS [Suspect]
     Active Substance: PALIVIZUMAB
     Indication: NEUROMYOPATHY
     Dosage: 80 MG
     Route: 030
     Dates: start: 20100115, end: 20100115
  2. SYNAGIS [Suspect]
     Active Substance: PALIVIZUMAB
     Indication: NEUROMYOPATHY
     Dosage: 84 MG
     Route: 030
     Dates: start: 20100222, end: 20100222
  3. SYNAGIS [Suspect]
     Active Substance: PALIVIZUMAB
     Indication: NEUROMYOPATHY
     Dosage: 102 MG
     Route: 030
     Dates: start: 20100929, end: 20100929
  4. SYNAGIS [Suspect]
     Active Substance: PALIVIZUMAB
     Indication: NEUROMYOPATHY
     Dosage: 113 MG
     Route: 030
     Dates: start: 20110114, end: 20110114
  5. SYNAGIS [Suspect]
     Active Substance: PALIVIZUMAB
     Indication: NEUROMYOPATHY
     Dosage: 108 MG
     Route: 030
     Dates: start: 20101118, end: 20101118
  6. SYNAGIS [Suspect]
     Active Substance: PALIVIZUMAB
     Indication: NEUROMYOPATHY
     Dosage: 86 MG
     Route: 030
     Dates: start: 20100322, end: 20100322

REACTIONS (1)
  - Bronchitis [Unknown]

NARRATIVE: CASE EVENT DATE: 201003
